FAERS Safety Report 16021190 (Version 1)
Quarter: 2019Q1

REPORT INFORMATION
  Report Type: Spontaneous
  Country: CN (occurrence: CN)
  Receive Date: 20190301
  Receipt Date: 20190301
  Transmission Date: 20190418
  Serious: Yes (Other)
  Sender: FDA-Public Use
  Company Number: CN-ROCHE-2271168

PATIENT
  Age: 48 Year
  Sex: Female

DRUGS (31)
  1. CAPECITABINE. [Suspect]
     Active Substance: CAPECITABINE
     Dosage: 1 G IN THE MORNING, 1.5 G IN THE EVENING
     Route: 048
     Dates: start: 20180715
  2. CAPECITABINE. [Suspect]
     Active Substance: CAPECITABINE
     Dosage: 1 G IN THE MORNING, 1.5 G IN THE EVENING
     Route: 048
     Dates: start: 20181014
  3. LIPOSOME ENTRAPPED PACLITAXEL [Concomitant]
     Active Substance: PACLITAXEL
     Indication: INVASIVE DUCTAL BREAST CARCINOMA
     Dosage: FOR 4 CYCLES
     Route: 065
     Dates: start: 20130718
  4. TAMOXIFEN [Concomitant]
     Active Substance: TAMOXIFEN
     Indication: INVASIVE DUCTAL BREAST CARCINOMA
  5. HERCEPTIN [Suspect]
     Active Substance: TRASTUZUMAB
     Route: 065
     Dates: start: 20150508
  6. HERCEPTIN [Suspect]
     Active Substance: TRASTUZUMAB
     Dosage: FOR 1 CYCLE
     Route: 065
     Dates: start: 20180715
  7. EPIRUBICIN [Concomitant]
     Active Substance: EPIRUBICIN
     Indication: INVASIVE DUCTAL BREAST CARCINOMA
     Dosage: FOR 2 CYCLES
     Route: 065
     Dates: start: 20130607
  8. CAPECITABINE. [Suspect]
     Active Substance: CAPECITABINE
     Indication: INVASIVE DUCTAL BREAST CARCINOMA
     Route: 048
     Dates: start: 20170524
  9. CAPECITABINE. [Suspect]
     Active Substance: CAPECITABINE
     Route: 048
     Dates: start: 20180512
  10. ZOLEDRONIC ACID [Concomitant]
     Active Substance: ZOLEDRONIC ACID
  11. HERCEPTIN [Suspect]
     Active Substance: TRASTUZUMAB
     Indication: INVASIVE DUCTAL BREAST CARCINOMA
     Dosage: FOR 4 CYCLES
     Route: 041
     Dates: start: 20180116
  12. HERCEPTIN [Suspect]
     Active Substance: TRASTUZUMAB
     Dosage: FOR 4 CYCLES
     Route: 041
     Dates: start: 20181109
  13. EPIRUBICIN [Concomitant]
     Active Substance: EPIRUBICIN
     Dosage: FOR 4 CYCLES
     Route: 065
     Dates: start: 20130718
  14. LETROZOLE. [Concomitant]
     Active Substance: LETROZOLE
     Route: 065
     Dates: start: 2017
  15. CAPECITABINE. [Suspect]
     Active Substance: CAPECITABINE
     Route: 048
     Dates: start: 20180116
  16. CAPECITABINE. [Suspect]
     Active Substance: CAPECITABINE
     Route: 048
     Dates: start: 20180309
  17. CYCLOPHOSPHAMIDE. [Concomitant]
     Active Substance: CYCLOPHOSPHAMIDE
     Indication: INVASIVE DUCTAL BREAST CARCINOMA
     Dosage: FOR 2 CYCLES
     Route: 065
     Dates: start: 20130607
  18. PACLITAXEL. [Concomitant]
     Active Substance: PACLITAXEL
     Indication: INVASIVE DUCTAL BREAST CARCINOMA
     Route: 065
     Dates: start: 20150311
  19. PACLITAXEL. [Concomitant]
     Active Substance: PACLITAXEL
     Dosage: FOR 4 CYCLES
     Route: 065
     Dates: start: 20181109
  20. HERCEPTIN [Suspect]
     Active Substance: TRASTUZUMAB
     Indication: INVASIVE DUCTAL BREAST CARCINOMA
     Route: 065
     Dates: start: 20150311
  21. HERCEPTIN [Suspect]
     Active Substance: TRASTUZUMAB
     Dosage: FOR 4 CYCLES
     Route: 041
     Dates: start: 20180807
  22. CAPECITABINE. [Suspect]
     Active Substance: CAPECITABINE
     Dosage: 1 G IN THE MORNING, 1.5 G IN THE EVENING
     Route: 048
     Dates: start: 20180920
  23. CYCLOPHOSPHAMIDE. [Concomitant]
     Active Substance: CYCLOPHOSPHAMIDE
     Dosage: FOR 4 CYCLES
     Route: 065
     Dates: start: 20130718
  24. DOCETAXEL. [Concomitant]
     Active Substance: DOCETAXEL
     Indication: INVASIVE DUCTAL BREAST CARCINOMA
     Dosage: FOR 2 CYCLES
     Route: 065
     Dates: start: 20130607
  25. PACLITAXEL. [Concomitant]
     Active Substance: PACLITAXEL
     Route: 065
     Dates: start: 20150508
  26. CAPECITABINE. [Suspect]
     Active Substance: CAPECITABINE
     Dosage: 1 G IN THE MORNING, 1.5 G IN THE EVENING?SUBSEQUENT DOSE ON 28/AUG/2018
     Route: 048
     Dates: start: 20180807
  27. PACLITAXEL. [Concomitant]
     Active Substance: PACLITAXEL
     Route: 065
     Dates: start: 20150406
  28. PEMETREXED. [Concomitant]
     Active Substance: PEMETREXED
     Indication: INVASIVE DUCTAL BREAST CARCINOMA
     Dosage: FOR 3 CYCLES
     Route: 041
     Dates: start: 20170620
  29. HERCEPTIN [Suspect]
     Active Substance: TRASTUZUMAB
     Route: 065
     Dates: start: 20150406
  30. CAPECITABINE. [Suspect]
     Active Substance: CAPECITABINE
     Route: 048
     Dates: start: 20180213
  31. LETROZOLE. [Concomitant]
     Active Substance: LETROZOLE
     Indication: INVASIVE DUCTAL BREAST CARCINOMA
     Route: 065
     Dates: start: 201310

REACTIONS (1)
  - Hydrocephalus [Unknown]

NARRATIVE: CASE EVENT DATE: 2017
